FAERS Safety Report 14211171 (Version 1)
Quarter: 2017Q4

REPORT INFORMATION
  Report Type: Spontaneous
  Country: US (occurrence: None)
  Receive Date: 20171121
  Receipt Date: 20171121
  Transmission Date: 20180321
  Serious: Yes (Disabling)
  Sender: FDA-Public Use
  Company Number: None

PATIENT
  Age: 58 Year
  Sex: Female
  Weight: 72.58 kg

DRUGS (2)
  1. CALCIUM + VITAMIN D SUPPLEMENTS [Concomitant]
  2. ALEVE [Suspect]
     Active Substance: NAPROXEN SODIUM
     Indication: NECK PAIN
     Dosage: 1-X/DAY, ORAL
     Route: 048
     Dates: start: 201705, end: 20170812

REACTIONS (3)
  - Peripheral swelling [None]
  - Joint swelling [None]
  - Hypertension [None]

NARRATIVE: CASE EVENT DATE: 201708
